FAERS Safety Report 15064239 (Version 1)
Quarter: 2018Q2

REPORT INFORMATION
  Report Type: Report from Study
  Country: US (occurrence: US)
  Receive Date: 20180625
  Receipt Date: 20180625
  Transmission Date: 20180711
  Serious: No
  Sender: FDA-Public Use
  Company Number: US-AMGEN-USASL2016060929

PATIENT
  Age: 63 Year
  Sex: Female
  Weight: 49.89 kg

DRUGS (1)
  1. REPATHA [Suspect]
     Active Substance: EVOLOCUMAB
     Indication: HYPERCHOLESTEROLAEMIA
     Dosage: 140 MG, Q2WK
     Route: 065
     Dates: start: 20151116

REACTIONS (5)
  - Influenza [Unknown]
  - Injury associated with device [Unknown]
  - Animal bite [Unknown]
  - Wrong technique in device usage process [Recovered/Resolved]
  - Injection site haemorrhage [Unknown]
